FAERS Safety Report 10263926 (Version 2)
Quarter: 2014Q2

REPORT INFORMATION
  Report Type: Spontaneous
  Country: FR (occurrence: FR)
  Receive Date: 20140627
  Receipt Date: 20140627
  Transmission Date: 20141212
  Serious: Yes (Other)
  Sender: FDA-Public Use
  Company Number: FR-UCBSA-121497

PATIENT
  Sex: Female

DRUGS (1)
  1. VIMPAT [Suspect]
     Dosage: 50 MG, 2X/DAY (BID)
     Route: 048
     Dates: start: 201405, end: 201405

REACTIONS (2)
  - Gamma-glutamyltransferase increased [Unknown]
  - Transaminases increased [Unknown]
